FAERS Safety Report 4579436-4 (Version None)
Quarter: 2005Q1

REPORT INFORMATION
  Report Type: 
  Country: None (occurrence: None)
  Receive Date: 20050209
  Receipt Date: 20050121
  Transmission Date: 20050727
  Serious: Yes (Other)
  Sender: FDA-Public Use
  Company Number: USA050188890

PATIENT
  Age: 30 Year
  Sex: Female
  Weight: 55 kg

DRUGS (3)
  1. PROZAC [Suspect]
     Indication: DEPRESSION
     Dosage: 20 MG/1 IN THE MORNING
     Dates: start: 20041227
  2. DESYREL [Concomitant]
  3. SYNTHROID [Concomitant]

REACTIONS (7)
  - AGGRESSION [None]
  - CHEST PAIN [None]
  - CONDITION AGGRAVATED [None]
  - DECREASED APPETITE [None]
  - HOMICIDAL IDEATION [None]
  - INSOMNIA [None]
  - MOOD ALTERED [None]
